FAERS Safety Report 6896318-3 (Version None)
Quarter: 2010Q3

REPORT INFORMATION
  Report Type: 
  Country: None (occurrence: None)
  Receive Date: 20100802
  Receipt Date: 20100726
  Transmission Date: 20110219
  Serious: Yes (Hospitalization)
  Sender: FDA-Public Use
  Company Number: AU-AMGEN-QUU427004

PATIENT
  Sex: Female
  Weight: 58 kg

DRUGS (5)
  1. ARANESP [Suspect]
     Indication: ANAEMIA OF MALIGNANT DISEASE
  2. ROCALTROL [Suspect]
  3. THALIDOMIDE [Suspect]
     Route: 048
     Dates: start: 20091010, end: 20100305
  4. INDERAL [Concomitant]
  5. LIPITOR [Concomitant]

REACTIONS (1)
  - PANCREATITIS [None]
